FAERS Safety Report 7880519-1 (Version None)
Quarter: 2011Q4

REPORT INFORMATION
  Report Type: 
  Country: None (occurrence: None)
  Receive Date: 20111101
  Receipt Date: 20111028
  Transmission Date: 20120403
  Serious: Yes (Death, Hospitalization)
  Sender: FDA-Public Use
  Company Number: PHHY2011MX95621

PATIENT
  Sex: Female

DRUGS (1)
  1. DIOVAN [Suspect]
     Indication: HYPERTENSION
     Dosage: 160 MG, (ONE TABLET BY DAY)

REACTIONS (4)
  - RESPIRATORY ARREST [None]
  - RENAL FAILURE CHRONIC [None]
  - MYOCARDIAL INFARCTION [None]
  - HYPOTHYROIDISM [None]
